FAERS Safety Report 16981802 (Version 2)
Quarter: 2019Q4

REPORT INFORMATION
  Report Type: Spontaneous
  Country: TW (occurrence: TW)
  Receive Date: 20191101
  Receipt Date: 20191130
  Transmission Date: 20200122
  Serious: Yes (Hospitalization, Other)
  Sender: FDA-Public Use
  Company Number: TW-AMGEN-TWNSP2019176399

PATIENT
  Age: 79 Year
  Sex: Male

DRUGS (5)
  1. SALAZINE [Concomitant]
     Active Substance: SULFASALAZINE
     Dosage: 2 DOSAGE FORM, BID
     Route: 048
  2. SALAZINE [Concomitant]
     Active Substance: SULFASALAZINE
     Dosage: 2 DF, BID
     Route: 048
  3. ENBREL [Suspect]
     Active Substance: ETANERCEPT
     Indication: RHEUMATOID ARTHRITIS
     Dosage: 25 MILLIGRAM, 2 TIMES/WK
     Route: 058
  4. MTX [METHOTREXATE] [Concomitant]
     Active Substance: METHOTREXATE SODIUM
     Dosage: 6 DOSAGE FORM, QWK
     Route: 048
  5. PLAQUENIL [Concomitant]
     Active Substance: HYDROXYCHLOROQUINE SULFATE
     Dosage: 1 DOSAGE FORM, BID
     Route: 048

REACTIONS (5)
  - Urosepsis [Not Recovered/Not Resolved]
  - Diabetes mellitus [Recovered/Resolved]
  - Acute kidney injury [Recovered/Resolved]
  - Bacteraemia [Recovered/Resolved]
  - Urinary tract infection [Recovered/Resolved]

NARRATIVE: CASE EVENT DATE: 201910
